FAERS Safety Report 4718830-5 (Version None)
Quarter: 2005Q3

REPORT INFORMATION
  Report Type: 
  Country: None (occurrence: None)
  Receive Date: 20050719
  Receipt Date: 20050701
  Transmission Date: 20060218
  Serious: Yes (Other)
  Sender: FDA-Public Use
  Company Number: US_0507119809

PATIENT
  Age: 65 Year
  Sex: Female
  Weight: 48 kg

DRUGS (3)
  1. FORTEO [Suspect]
     Indication: OSTEOPOROSIS
     Dates: start: 20050301
  2. CALCIUM PLUS D [Concomitant]
  3. CALCIUM GLUCONATE [Concomitant]

REACTIONS (12)
  - BENIGN NEOPLASM OF THYROID GLAND [None]
  - BLOOD CALCIUM INCREASED [None]
  - BLOOD PHOSPHORUS DECREASED [None]
  - CHEST PAIN [None]
  - CHRONIC OBSTRUCTIVE PULMONARY DISEASE [None]
  - DYSPNOEA [None]
  - HAEMANGIOMA [None]
  - HEPATIC LESION [None]
  - HEPATIC MASS [None]
  - MULTIPLE SCLEROSIS [None]
  - OSTEOCALCIN INCREASED [None]
  - VITAMIN D INCREASED [None]
